FAERS Safety Report 4314449-9 (Version None)
Quarter: 2004Q1

REPORT INFORMATION
  Report Type: 
  Country: None (occurrence: None)
  Receive Date: 20040309
  Receipt Date: 20040224
  Transmission Date: 20041129
  Serious: Yes (Other)
  Sender: FDA-Public Use
  Company Number: DE-ROCHE-359771

PATIENT
  Sex: Female
  Weight: 65 kg

DRUGS (2)
  1. CAPECITABINE [Suspect]
     Indication: BREAST CANCER
     Route: 048
     Dates: start: 20031120, end: 20031124
  2. HERCEPTIN [Concomitant]

REACTIONS (5)
  - MOTOR DYSFUNCTION [None]
  - NAUSEA [None]
  - PAIN [None]
  - STOMATITIS [None]
  - VOMITING [None]
